FAERS Safety Report 21656120 (Version 1)
Quarter: 2022Q4

REPORT INFORMATION
  Report Type: Spontaneous
  Country: AU (occurrence: AU)
  Receive Date: 20221129
  Receipt Date: 20221129
  Transmission Date: 20230112
  Serious: No
  Sender: FDA-Public Use
  Company Number: AU-LUPIN PHARMACEUTICALS INC.-2022-13805

PATIENT
  Age: 37 Year
  Sex: Male

DRUGS (4)
  1. IRBESARTAN [Suspect]
     Active Substance: IRBESARTAN
     Indication: IgA nephropathy
     Dosage: 150 MG, QD
     Route: 065
  2. COMIRNATY [Concomitant]
     Active Substance: TOZINAMERAN
     Indication: COVID-19 immunisation
     Dosage: UNK, 1ST DOSE
     Route: 065
  3. COMIRNATY [Concomitant]
     Active Substance: TOZINAMERAN
     Dosage: UNK, 2ND DOSE
     Route: 065
  4. DAPAGLIFLOZIN [Concomitant]
     Active Substance: DAPAGLIFLOZIN
     Indication: IgA nephropathy
     Dosage: 10 MG
     Route: 065

REACTIONS (1)
  - Off label use [Unknown]
